FAERS Safety Report 20711573 (Version 1)
Quarter: 2022Q2

REPORT INFORMATION
  Report Type: Spontaneous
  Country: US (occurrence: US)
  Receive Date: 20220414
  Receipt Date: 20220414
  Transmission Date: 20220721
  Serious: No
  Sender: FDA-Public Use
  Company Number: US-CHIASMA-2022CHI00015

PATIENT
  Sex: Male

DRUGS (1)
  1. MYCAPSSA [Suspect]
     Active Substance: OCTREOTIDE
     Indication: Product used for unknown indication
     Dosage: UNK
     Route: 048

REACTIONS (3)
  - Faeces discoloured [Not Recovered/Not Resolved]
  - Faeces pale [Not Recovered/Not Resolved]
  - Abdominal distension [Not Recovered/Not Resolved]
